FAERS Safety Report 11101224 (Version 1)
Quarter: 2015Q2

REPORT INFORMATION
  Report Type: Spontaneous
  Country: US (occurrence: US)
  Receive Date: 20150508
  Receipt Date: 20150508
  Transmission Date: 20150821
  Serious: No
  Sender: FDA-Public Use
  Company Number: US-ASTRAZENECA-2015SE40189

PATIENT
  Sex: Female

DRUGS (9)
  1. REMERON [Concomitant]
     Active Substance: MIRTAZAPINE
  2. NEUROTIN [Concomitant]
     Active Substance: GABAPENTIN
  3. BUSPAR [Concomitant]
     Active Substance: BUSPIRONE HYDROCHLORIDE
  4. SEROQUEL [Suspect]
     Active Substance: QUETIAPINE FUMARATE
     Route: 048
  5. KEPPRA [Concomitant]
     Active Substance: LEVETIRACETAM
  6. CLONIDINE. [Concomitant]
     Active Substance: CLONIDINE
  7. KLONOPIN [Concomitant]
     Active Substance: CLONAZEPAM
  8. LYRICA [Concomitant]
     Active Substance: PREGABALIN
  9. EFFEXOR [Concomitant]
     Active Substance: VENLAFAXINE HYDROCHLORIDE

REACTIONS (16)
  - Feeling cold [Unknown]
  - Pollakiuria [Unknown]
  - Tremor [Unknown]
  - Anxiety [Unknown]
  - Fear [Unknown]
  - Depersonalisation [Unknown]
  - Drug withdrawal syndrome [Unknown]
  - Dry skin [Unknown]
  - Abdominal pain upper [Unknown]
  - Burning sensation [Unknown]
  - Eye irritation [Unknown]
  - Restlessness [Unknown]
  - Nasal dryness [Unknown]
  - Dry eye [Unknown]
  - Pruritus [Unknown]
  - Dyskinesia [Unknown]
